FAERS Safety Report 21653218 (Version 2)
Quarter: 2022Q4

REPORT INFORMATION
  Report Type: Report from Study
  Country: KR (occurrence: KR)
  Receive Date: 20221128
  Receipt Date: 20221130
  Transmission Date: 20230113
  Serious: Yes (Hospitalization, Other)
  Sender: FDA-Public Use
  Company Number: KR-ABBVIE-4215196

PATIENT
  Age: 70 Year
  Sex: Male
  Weight: 78 kg

DRUGS (51)
  1. RINVOQ [Suspect]
     Active Substance: UPADACITINIB
     Indication: Rheumatoid arthritis
     Route: 048
     Dates: start: 20220203, end: 20220425
  2. METHYLPREDNISOLONE [Concomitant]
     Active Substance: METHYLPREDNISOLONE
     Indication: Rheumatoid arthritis
     Dates: start: 20220502, end: 20220502
  3. METHYLPREDNISOLONE [Concomitant]
     Active Substance: METHYLPREDNISOLONE
     Indication: Rheumatoid arthritis
     Dates: start: 20220503, end: 20220506
  4. CELEBREX [Concomitant]
     Active Substance: CELECOXIB
     Indication: Rheumatoid arthritis
     Dates: start: 20210317, end: 20220503
  5. VICAFEROL PLUS [Concomitant]
     Indication: Osteoporosis
     Route: 048
     Dates: start: 20220427, end: 20220509
  6. VICAFEROL PLUS [Concomitant]
     Indication: Osteoporosis
     Route: 048
     Dates: start: 20210707, end: 20220425
  7. Methotrexate YUHAN [Concomitant]
     Indication: Rheumatoid arthritis
     Dosage: 2.5 MG
     Route: 048
     Dates: start: 20161031
  8. METHOTREXATE [Concomitant]
     Active Substance: METHOTREXATE
     Indication: Rheumatoid arthritis
     Dates: start: 20210317, end: 20220425
  9. METHYLPREDNISOLONE [Concomitant]
     Active Substance: METHYLPREDNISOLONE
     Indication: Rheumatoid arthritis
     Dates: start: 20220503, end: 20220506
  10. METHYLPREDNISOLONE [Concomitant]
     Active Substance: METHYLPREDNISOLONE
     Indication: Rheumatoid arthritis
     Dates: start: 20220502, end: 20220502
  11. LAMINA-G [Concomitant]
     Indication: Gastric ulcer
     Dosage: SOLN 20ML
     Route: 048
     Dates: start: 20220507, end: 20220507
  12. LAMINA-G [Concomitant]
     Indication: Gastric ulcer
     Dosage: SOLN 20ML
     Route: 048
     Dates: start: 20220418, end: 20220501
  13. LAMINA-G [Concomitant]
     Indication: Gastric ulcer
     Dosage: SOLN 20ML
     Route: 048
     Dates: start: 20210317, end: 20210610
  14. LAMINA-G [Concomitant]
     Indication: Gastric ulcer
     Dosage: TIME INTERVAL: 0.33333333 DAYS: SOLN 20ML
     Dates: start: 20220507, end: 20220507
  15. PREDNISOLONE [Concomitant]
     Active Substance: PREDNISOLONE
     Indication: Rheumatoid arthritis
     Dates: start: 20220609, end: 20220629
  16. PREDNISOLONE [Concomitant]
     Active Substance: PREDNISOLONE
     Indication: Rheumatoid arthritis
     Dates: start: 20210317, end: 20220927
  17. PREDNISOLONE [Concomitant]
     Active Substance: PREDNISOLONE
     Indication: Rheumatoid arthritis
     Dates: start: 20220507, end: 20220511
  18. PREDNISOLONE [Concomitant]
     Active Substance: PREDNISOLONE
     Indication: Rheumatoid arthritis
     Dates: start: 20220804, end: 20220831
  19. PREDNISOLONE [Concomitant]
     Active Substance: PREDNISOLONE
     Indication: Rheumatoid arthritis
     Dates: start: 20220512, end: 20220525
  20. PREDNISOLONE [Concomitant]
     Active Substance: PREDNISOLONE
     Indication: Rheumatoid arthritis
     Dates: start: 20220714, end: 20220803
  21. PREDNISOLONE [Concomitant]
     Active Substance: PREDNISOLONE
     Indication: Rheumatoid arthritis
     Dates: start: 20220630, end: 20220713
  22. PREDNISOLONE [Concomitant]
     Active Substance: PREDNISOLONE
     Indication: Rheumatoid arthritis
     Dates: start: 20220901
  23. PREDNISOLONE [Concomitant]
     Active Substance: PREDNISOLONE
     Indication: Rheumatoid arthritis
     Dates: start: 20220526, end: 20220608
  24. PRAVASTATIN SODIUM [Concomitant]
     Active Substance: PRAVASTATIN SODIUM
     Indication: Dyslipidaemia
     Dosage: 40MG
     Route: 048
     Dates: start: 20220427
  25. PRAVASTATIN SODIUM [Concomitant]
     Active Substance: PRAVASTATIN SODIUM
     Indication: Dyslipidaemia
     Dosage: 40MG
     Route: 048
     Dates: start: 20190718, end: 20220425
  26. PRAVASTATIN SODIUM [Concomitant]
     Active Substance: PRAVASTATIN SODIUM
     Indication: Dyslipidaemia
     Route: 048
     Dates: start: 20190718
  27. PRAVASTATIN SODIUM [Concomitant]
     Active Substance: PRAVASTATIN SODIUM
     Indication: Dyslipidaemia
     Dates: start: 20210317
  28. PREDNISOLONE [Concomitant]
     Active Substance: PREDNISOLONE
     Indication: Rheumatoid arthritis
     Dates: start: 20220512, end: 20220525
  29. PREDNISOLONE [Concomitant]
     Active Substance: PREDNISOLONE
     Indication: Rheumatoid arthritis
     Dates: start: 20210317, end: 20220927
  30. PREDNISOLONE [Concomitant]
     Active Substance: PREDNISOLONE
     Indication: Rheumatoid arthritis
     Dates: start: 20220804, end: 20220831
  31. PREDNISOLONE [Concomitant]
     Active Substance: PREDNISOLONE
     Indication: Rheumatoid arthritis
     Dates: start: 20220526, end: 20220608
  32. PREDNISOLONE [Concomitant]
     Active Substance: PREDNISOLONE
     Indication: Rheumatoid arthritis
     Dates: start: 20220714, end: 20220803
  33. PREDNISOLONE [Concomitant]
     Active Substance: PREDNISOLONE
     Indication: Rheumatoid arthritis
     Dates: start: 20220609, end: 20220629
  34. PREDNISOLONE [Concomitant]
     Active Substance: PREDNISOLONE
     Indication: Rheumatoid arthritis
     Dates: start: 20220630, end: 20220713
  35. PREDNISOLONE [Concomitant]
     Active Substance: PREDNISOLONE
     Indication: Rheumatoid arthritis
     Dates: start: 20220507, end: 20220511
  36. PREDNISOLONE [Concomitant]
     Active Substance: PREDNISOLONE
     Indication: Rheumatoid arthritis
     Dates: start: 20220901
  37. CELEBREX [Concomitant]
     Active Substance: CELECOXIB
     Indication: Rheumatoid arthritis
     Route: 048
     Dates: start: 20191121
  38. TRAJENTA DUO TAB 2.5/500mg [Concomitant]
     Indication: Rheumatoid arthritis
     Dates: start: 20210317
  39. TRAJENTA DUO TAB 2.5/500mg [Concomitant]
     Indication: Rheumatoid arthritis
     Route: 048
     Dates: start: 20201026, end: 20220507
  40. DAIHAN ISOTONIC SODIUM CHLORIDE [Concomitant]
     Indication: Rheumatoid arthritis
     Dosage: INJ 100ML (BAG)
     Dates: start: 20220502, end: 20220506
  41. PRANDIN [Concomitant]
     Active Substance: REPAGLINIDE
     Indication: Rheumatoid arthritis
     Dates: start: 20210928, end: 20211203
  42. PRANDIN [Concomitant]
     Active Substance: REPAGLINIDE
     Indication: Rheumatoid arthritis
     Dates: start: 20220428, end: 20220503
  43. SULFAMETHOXAZOLE\TRIMETHOPRIM [Concomitant]
     Active Substance: SULFAMETHOXAZOLE\TRIMETHOPRIM
     Indication: Organising pneumonia
     Route: 048
     Dates: start: 20220503, end: 20220608
  44. SULFAMETHOXAZOLE\TRIMETHOPRIM [Concomitant]
     Active Substance: SULFAMETHOXAZOLE\TRIMETHOPRIM
     Indication: Organising pneumonia
     Route: 048
     Dates: start: 20220609, end: 20220629
  45. SULFAMETHOXAZOLE\TRIMETHOPRIM [Concomitant]
     Active Substance: SULFAMETHOXAZOLE\TRIMETHOPRIM
     Indication: Organising pneumonia
     Route: 048
     Dates: start: 20220630
  46. SULFAMETHOXAZOLE\TRIMETHOPRIM [Concomitant]
     Active Substance: SULFAMETHOXAZOLE\TRIMETHOPRIM
     Indication: Organising pneumonia
     Route: 048
     Dates: start: 20220502, end: 20220502
  47. K-CAB [Concomitant]
     Indication: Gastric ulcer
     Dosage: 50 MG
     Route: 048
     Dates: start: 20220427, end: 20220512
  48. K-CAB [Concomitant]
     Indication: Gastric ulcer
     Dosage: 50 MG
     Route: 048
     Dates: start: 20210512, end: 20220425
  49. FOLIC ACID [Concomitant]
     Active Substance: FOLIC ACID
     Indication: Rheumatoid arthritis
     Dates: start: 20210317, end: 20220425
  50. FOLIC ACID [Concomitant]
     Active Substance: FOLIC ACID
     Indication: Rheumatoid arthritis
     Dates: start: 20220427
  51. LESOMEZOLE [Concomitant]
     Indication: Rheumatoid arthritis
     Dosage: 20MG
     Dates: start: 20210317, end: 20220511

REACTIONS (2)
  - Organising pneumonia [Recovering/Resolving]
  - Duodenal ulcer haemorrhage [Recovered/Resolved]

NARRATIVE: CASE EVENT DATE: 20220401
